FAERS Safety Report 17000878 (Version 7)
Quarter: 2020Q3

REPORT INFORMATION
  Report Type: Report from Study
  Country: US (occurrence: US)
  Receive Date: 20191106
  Receipt Date: 20200731
  Transmission Date: 20201102
  Serious: Yes (Other)
  Sender: FDA-Public Use
  Company Number: US-SA-2019SA300258

PATIENT

DRUGS (7)
  1. DUPILUMAB [Suspect]
     Active Substance: DUPILUMAB
     Indication: NASAL POLYPS
     Dosage: 300 MG, QOW
     Route: 058
     Dates: start: 20191001
  2. NEURONTIN [Concomitant]
     Active Substance: GABAPENTIN
  3. ATIVAN [Concomitant]
     Active Substance: LORAZEPAM
  4. BREO ELLIPTA [Concomitant]
     Active Substance: FLUTICASONE FUROATE\VILANTEROL TRIFENATATE
  5. DUPILUMAB [Suspect]
     Active Substance: DUPILUMAB
     Dosage: 200 MG, QOW
     Route: 058
  6. SYNTHROID [Concomitant]
     Active Substance: LEVOTHYROXINE SODIUM
  7. ESTRING [Concomitant]
     Active Substance: ESTRADIOL

REACTIONS (12)
  - Myalgia [Unknown]
  - Nasopharyngitis [Unknown]
  - Off label use [Unknown]
  - Respiratory tract irritation [Unknown]
  - Wheezing [Unknown]
  - Eye swelling [Unknown]
  - Pain in extremity [Recovered/Resolved]
  - Arthralgia [Unknown]
  - Polyarthritis [Recovered/Resolved]
  - Cough [Unknown]
  - Gait disturbance [Recovered/Resolved]
  - Off label use [Unknown]

NARRATIVE: CASE EVENT DATE: 2019
